FAERS Safety Report 8054508-0 (Version None)
Quarter: 2012Q1

REPORT INFORMATION
  Report Type: 
  Country: None (occurrence: None)
  Receive Date: 20120118
  Receipt Date: 20120113
  Transmission Date: 20120608
  Serious: Yes (Death, Life-Threatening, Hospitalization)
  Sender: FDA-Public Use
  Company Number: US-ROCHE-1027515

PATIENT
  Sex: Female

DRUGS (1)
  1. VEMURAFENIB [Suspect]
     Indication: THYROID CANCER
     Dosage: DATE OF LAST DOSE PRIOR TO SAE: 24/DEC/2012

REACTIONS (6)
  - MULTI-ORGAN FAILURE [None]
  - HYDROPNEUMOTHORAX [None]
  - DYSPNOEA [None]
  - HYPOTENSION [None]
  - LEFT VENTRICULAR DYSFUNCTION [None]
  - ATRIAL FIBRILLATION [None]
